FAERS Safety Report 17469390 (Version 4)
Quarter: 2020Q4

REPORT INFORMATION
  Report Type: Spontaneous
  Country: US (occurrence: US)
  Receive Date: 20200227
  Receipt Date: 20201105
  Transmission Date: 20210113
  Serious: Yes (Other)
  Sender: FDA-Public Use
  Company Number: US-PFIZER INC-2020087455

PATIENT
  Age: 63 Year
  Sex: Male
  Weight: 82 kg

DRUGS (1)
  1. VIAGRA [Suspect]
     Active Substance: SILDENAFIL CITRATE
     Indication: SEXUAL DYSFUNCTION
     Dosage: 100 MG

REACTIONS (3)
  - Sleep disorder [Recovered/Resolved]
  - Deafness [Unknown]
  - Hypoacusis [Unknown]
